FAERS Safety Report 9444510 (Version 1)
Quarter: 2013Q3

REPORT INFORMATION
  Report Type: Spontaneous
  Country: US (occurrence: None)
  Receive Date: 20130806
  Receipt Date: 20130806
  Transmission Date: 20140515
  Serious: Yes (Disabling)
  Sender: FDA-Public Use
  Company Number: None

PATIENT
  Age: 33 Year
  Sex: Male
  Weight: 104.33 kg

DRUGS (1)
  1. CIPRO [Suspect]
     Dosage: 500 MG 2 X DAY ORAL
     Route: 048
     Dates: start: 20130718, end: 20130727

REACTIONS (6)
  - Arthralgia [None]
  - Tendonitis [None]
  - Anxiety [None]
  - Muscular weakness [None]
  - Pain in extremity [None]
  - Musculoskeletal pain [None]
